FAERS Safety Report 8063108-8 (Version None)
Quarter: 2012Q1

REPORT INFORMATION
  Report Type: 
  Country: None (occurrence: None)
  Receive Date: 20120123
  Receipt Date: 20120112
  Transmission Date: 20120608
  Serious: Yes (Hospitalization)
  Sender: FDA-Public Use
  Company Number: US-BAYER-2011-073140

PATIENT
  Age: 34 Year
  Sex: Female
  Weight: 84.354 kg

DRUGS (12)
  1. SYNTHROID [Concomitant]
  2. FLEXERIL [Concomitant]
     Dosage: UNK UNK, TID
  3. IBUPROFEN [Concomitant]
     Dosage: 800 MG, PRN
  4. GEODON [Concomitant]
     Indication: BIPOLAR DISORDER
     Dosage: UNK
     Dates: start: 20050101, end: 20100101
  5. AMBIEN [Concomitant]
  6. KLONOPIN [Concomitant]
     Indication: ANXIETY
     Dosage: UNK
     Dates: start: 20080101, end: 20100101
  7. PEPCID [Concomitant]
  8. PROTONIX [Concomitant]
  9. ALBUTEROL [Concomitant]
     Dosage: UNK
     Dates: start: 19800101, end: 20100101
  10. LAMICTAL [Concomitant]
     Indication: BIPOLAR DISORDER
     Dosage: UNK
     Dates: start: 20050101, end: 20100101
  11. YAZ [Suspect]
     Indication: CONTRACEPTION
     Dosage: UNK
     Dates: start: 20060101, end: 20090101
  12. PROAIR HFA [Concomitant]

REACTIONS (3)
  - PAIN [None]
  - GALLBLADDER DISORDER [None]
  - CHOLELITHIASIS [None]
